FAERS Safety Report 6143740-9 (Version None)
Quarter: 2009Q2

REPORT INFORMATION
  Report Type: 
  Country: None (occurrence: None)
  Receive Date: 20090403
  Receipt Date: 20090326
  Transmission Date: 20091009
  Serious: Yes (Other)
  Sender: FDA-Public Use
  Company Number: US-GENENTECH-280069

PATIENT
  Age: 54 Year
  Sex: Female
  Weight: 67.12 kg

DRUGS (9)
  1. AVASTIN [Suspect]
     Indication: DRUG USE FOR UNKNOWN INDICATION
     Dosage: 10 MG/KG, UNK
     Dates: end: 20081226
  2. TAXOL [Suspect]
     Indication: DRUG USE FOR UNKNOWN INDICATION
     Dosage: 140 MG/M2, UNK
     Dates: end: 20081226
  3. ATIVAN [Concomitant]
     Indication: DRUG USE FOR UNKNOWN INDICATION
  4. COLACE [Concomitant]
     Indication: DRUG USE FOR UNKNOWN INDICATION
  5. DICLOFENAC EC [Concomitant]
     Indication: DRUG USE FOR UNKNOWN INDICATION
  6. NEURONTIN [Concomitant]
     Indication: DRUG USE FOR UNKNOWN INDICATION
  7. SENNOSIDES [Concomitant]
     Indication: DRUG USE FOR UNKNOWN INDICATION
     Dosage: UNK TABLET, UNK
  8. VALTREX [Concomitant]
     Indication: DRUG USE FOR UNKNOWN INDICATION
  9. VICODIN [Concomitant]
     Indication: DRUG USE FOR UNKNOWN INDICATION

REACTIONS (2)
  - INTERVERTEBRAL DISC PROTRUSION [None]
  - NEUROPATHY PERIPHERAL [None]
